FAERS Safety Report 5114676-7 (Version None)
Quarter: 2006Q3

REPORT INFORMATION
  Report Type: 
  Country: None (occurrence: None)
  Receive Date: 20060926
  Receipt Date: 20060914
  Transmission Date: 20061208
  Serious: Yes (Death, Other)
  Sender: FDA-Public Use
  Company Number: US-JNJFOC-20050103953

PATIENT
  Sex: Female

DRUGS (8)
  1. REMICADE [Suspect]
     Indication: RHEUMATOID ARTHRITIS
     Route: 042
  2. METHOTREXATE [Concomitant]
  3. FOLIC ACID [Concomitant]
  4. SYNTHROID [Concomitant]
  5. TYLENOL [Concomitant]
  6. PREDNISONE TAB [Concomitant]
  7. MULTIVITAMIN [Concomitant]
  8. CALCIUM +D [Concomitant]

REACTIONS (5)
  - ABDOMINAL HERNIA [None]
  - BACTERIAL INFECTION [None]
  - DEATH [None]
  - MESENTERIC VASCULAR INSUFFICIENCY [None]
  - RESPIRATORY FAILURE [None]
